FAERS Safety Report 17360842 (Version 5)
Quarter: 2020Q1

REPORT INFORMATION
  Report Type: Report from Study
  Country: US (occurrence: US)
  Receive Date: 20200203
  Receipt Date: 20200324
  Transmission Date: 20200409
  Serious: Yes (Other)
  Sender: FDA-Public Use
  Company Number: NVSC2020US023298

PATIENT
  Sex: Female

DRUGS (1)
  1. PIQRAY [Suspect]
     Active Substance: ALPELISIB
     Indication: PRODUCT USED FOR UNKNOWN INDICATION
     Dosage: UNK
     Route: 048
     Dates: start: 201909, end: 20200126

REACTIONS (7)
  - Blood glucose increased [Unknown]
  - Carcinoembryonic antigen increased [Unknown]
  - Anxiety [Unknown]
  - Diabetes mellitus [Unknown]
  - Fatigue [Unknown]
  - Blood glucose decreased [Unknown]
  - Eye swelling [Unknown]
